FAERS Safety Report 22013505 (Version 1)
Quarter: 2023Q1

REPORT INFORMATION
  Report Type: Spontaneous
  Country: US (occurrence: US)
  Receive Date: 20230220
  Receipt Date: 20230220
  Transmission Date: 20230418
  Serious: No
  Sender: FDA-Public Use
  Company Number: US-AMGEN-USASP2022228892

PATIENT
  Sex: Male

DRUGS (1)
  1. OTEZLA [Suspect]
     Active Substance: APREMILAST
     Indication: Psoriasis
     Dosage: RX 1 FOLLOW PACKAGE DIRECTIONS ENCLOSED/6IIIL ^TITRAI^ION PACK 28 DAY 10 20 30
     Route: 065

REACTIONS (1)
  - Intentional product misuse [Not Recovered/Not Resolved]
